FAERS Safety Report 5446607-4 (Version None)
Quarter: 2007Q3

REPORT INFORMATION
  Report Type: 
  Country: None (occurrence: None)
  Receive Date: 20070907
  Receipt Date: 20070828
  Transmission Date: 20080115
  Serious: Yes (Hospitalization, Other)
  Sender: FDA-Public Use
  Company Number: GB-PFIZER INC-2007056236

PATIENT
  Sex: Female
  Weight: 68 kg

DRUGS (7)
  1. SALAZOPYRIN EN TABLETS [Suspect]
     Indication: RHEUMATOID ARTHRITIS
     Route: 048
  2. FELODIPINE [Concomitant]
     Indication: HYPERTENSION
     Route: 048
  3. LANSOPRAZOLE [Concomitant]
  4. NAPROXEN [Concomitant]
  5. DICLOFENAC [Concomitant]
     Indication: RHEUMATOID ARTHRITIS
     Route: 048
  6. ATENOLOL [Concomitant]
     Indication: HYPERTENSION
     Dosage: DAILY DOSE:100MG
     Route: 048
  7. ASPIRIN [Concomitant]
     Dosage: DAILY DOSE:75MG
     Route: 048

REACTIONS (4)
  - EYE PAIN [None]
  - EYE SWELLING [None]
  - OCULAR HYPERAEMIA [None]
  - SCLERITIS [None]
